FAERS Safety Report 14805097 (Version 1)
Quarter: 2018Q1

REPORT INFORMATION
  Report Type: Spontaneous
  Country: US (occurrence: US)
  Receive Date: 20180324
  Receipt Date: 20180324
  Transmission Date: 20180509
  Serious: Yes (Other)
  Sender: FDA-Public Use
  Company Number: None

PATIENT
  Age: 72 Year
  Sex: Female
  Weight: 60.75 kg

DRUGS (2)
  1. ASPIRIN. [Concomitant]
     Active Substance: ASPIRIN
  2. PROLIA [Suspect]
     Active Substance: DENOSUMAB
     Indication: BONE DISORDER
     Dosage: INJECTION EVERY 6 MONTHS?

REACTIONS (16)
  - Lip swelling [None]
  - Swollen tongue [None]
  - Rash [None]
  - Bone pain [None]
  - Throat tightness [None]
  - Pneumonia [None]
  - Dermatitis [None]
  - Scratch [None]
  - Pruritus [None]
  - Myalgia [None]
  - Dyspnoea [None]
  - Urticaria [None]
  - Arthralgia [None]
  - Alopecia [None]
  - Eczema [None]
  - Swelling face [None]

NARRATIVE: CASE EVENT DATE: 20171210
